FAERS Safety Report 6117586-1 (Version None)
Quarter: 2009Q1

REPORT INFORMATION
  Report Type: 
  Country: None (occurrence: None)
  Receive Date: 20090314
  Receipt Date: 20090121
  Transmission Date: 20090719
  Serious: No
  Sender: FDA-Public Use
  Company Number: US-ABBOTT-09P-163-0499079-00

PATIENT
  Sex: Male
  Weight: 70.824 kg

DRUGS (10)
  1. HUMIRA [Suspect]
     Indication: PSORIATIC ARTHROPATHY
     Route: 058
     Dates: start: 20080901
  2. TOPROL-XL [Concomitant]
     Indication: CARDIAC FAILURE
  3. TOPROL-XL [Concomitant]
     Indication: CARDIAC PACEMAKER INSERTION
  4. FUROSEMIDE [Concomitant]
     Indication: CARDIAC FAILURE
  5. LIPITOR [Concomitant]
     Indication: BLOOD CHOLESTEROL INCREASED
  6. AVAPRO [Concomitant]
     Indication: HYPERTENSION
  7. OCULAR VITAMINS [Concomitant]
     Indication: MACULAR DEGENERATION
  8. ALLOPURINOL [Concomitant]
     Indication: GOUT
     Dosage: ONCE DAILY
  9. UROXATAL [Concomitant]
     Indication: PROSTATOMEGALY
  10. PROZAC [Concomitant]
     Indication: DEPRESSION

REACTIONS (2)
  - INCORRECT DOSE ADMINISTERED [None]
  - WRONG TECHNIQUE IN DRUG USAGE PROCESS [None]
